FAERS Safety Report 5192484-9 (Version None)
Quarter: 2006Q4

REPORT INFORMATION
  Report Type: 
  Country: None (occurrence: None)
  Receive Date: 20061220
  Receipt Date: 20061208
  Transmission Date: 20070319
  Serious: Yes (Other)
  Sender: FDA-Public Use
  Company Number: 2006152344

PATIENT
  Sex: 0

DRUGS (2)
  1. CARDENALIN (DOXAZOSIN) [Suspect]
     Dosage: ORAL
     Route: 048
  2. DRUG, UNSPECIFIED (DRUG, UNSPECIFIED) [Concomitant]

REACTIONS (1)
  - EYELID PTOSIS [None]
